FAERS Safety Report 7520266-9 (Version None)
Quarter: 2011Q2

REPORT INFORMATION
  Report Type: 
  Country: None (occurrence: None)
  Receive Date: 20110602
  Receipt Date: 20110209
  Transmission Date: 20111010
  Serious: No
  Sender: FDA-Public Use
  Company Number: US-BAYER-201019950BCC

PATIENT
  Age: 63 Year
  Sex: Female
  Weight: 61 kg

DRUGS (2)
  1. ASPIRIN [Suspect]
     Indication: HEADACHE
     Dosage: DAILY DOSE 750 MG
     Route: 048
     Dates: start: 20100812
  2. ASPIRIN [Suspect]
     Dosage: COUNT SIZE 100S
     Route: 048
     Dates: start: 20110208

REACTIONS (1)
  - HEADACHE [None]
